FAERS Safety Report 9767885 (Version 1)
Quarter: 2013Q4

REPORT INFORMATION
  Report Type: Spontaneous
  Country: US (occurrence: None)
  Receive Date: 20131213
  Receipt Date: 20131213
  Transmission Date: 20140711
  Serious: Yes (Hospitalization)
  Sender: FDA-Public Use
  Company Number: FK201305295

PATIENT
  Age: 56 Year
  Sex: Male

DRUGS (2)
  1. MORPHINE [Suspect]
     Indication: OSTEOARTHRITIS
  2. MORPHINE [Suspect]
     Indication: FIBROMYALGIA

REACTIONS (1)
  - Pancreatitis acute [None]
